FAERS Safety Report 6059566-0 (Version None)
Quarter: 2009Q1

REPORT INFORMATION
  Report Type: 
  Country: None (occurrence: None)
  Receive Date: 20090127
  Receipt Date: 20090127
  Transmission Date: 20090719
  Serious: No
  Sender: FDA-Public Use
  Company Number: None

PATIENT
  Age: 49 Year
  Sex: Female
  Weight: 80.2867 kg

DRUGS (2)
  1. CYMBALTA [Suspect]
     Indication: ADJUSTMENT DISORDER
     Dosage: REDUCING FROM 50MG TO 30MG DAILY PO
     Route: 048
     Dates: start: 20070328, end: 20080601
  2. CYMBALTA [Suspect]

REACTIONS (4)
  - DEAFNESS UNILATERAL [None]
  - HYPOACUSIS [None]
  - SUDDEN HEARING LOSS [None]
  - TINNITUS [None]
